FAERS Safety Report 10906771 (Version 1)
Quarter: 2015Q1

REPORT INFORMATION
  Report Type: Spontaneous
  Country: US (occurrence: None)
  Receive Date: 20150309
  Receipt Date: 20150309
  Transmission Date: 20150721
  Serious: No
  Sender: FDA-Public Use
  Company Number: None

PATIENT
  Age: 38 Year
  Sex: Female
  Weight: 58.97 kg

DRUGS (1)
  1. METRONIDAZOLE. [Suspect]
     Active Substance: METRONIDAZOLE
     Indication: POST PROCEDURAL INFECTION
     Dosage: 1 PILL
     Route: 048
     Dates: start: 20150304, end: 20150307

REACTIONS (8)
  - Pulmonary congestion [None]
  - Vomiting [None]
  - Skin irritation [None]
  - Nausea [None]
  - Headache [None]
  - Diarrhoea [None]
  - Insomnia [None]
  - Cough [None]

NARRATIVE: CASE EVENT DATE: 20150304
